FAERS Safety Report 9410488 (Version 2)
Quarter: 2013Q3

REPORT INFORMATION
  Report Type: Report from Study
  Country: JP (occurrence: JP)
  Receive Date: 20130719
  Receipt Date: 20130830
  Transmission Date: 20140515
  Serious: Yes (Other)
  Sender: FDA-Public Use
  Company Number: JP-JNJFOC-20130711901

PATIENT
  Age: 40 Year
  Sex: Male
  Weight: 78 kg

DRUGS (14)
  1. STELARA [Suspect]
     Indication: PSORIASIS
     Route: 058
     Dates: start: 20130319, end: 20130319
  2. STELARA [Suspect]
     Indication: PSORIASIS
     Route: 058
     Dates: start: 20121210, end: 20121210
  3. STELARA [Suspect]
     Indication: PSORIASIS
     Route: 058
     Dates: start: 20120918, end: 20120918
  4. STELARA [Suspect]
     Indication: PSORIASIS
     Route: 058
     Dates: start: 20120626, end: 20120626
  5. STELARA [Suspect]
     Indication: PSORIASIS
     Route: 058
     Dates: start: 20120529, end: 20120529
  6. STELARA [Suspect]
     Indication: PSORIASIS
     Route: 058
     Dates: start: 20130607
  7. PROTOPIC [Concomitant]
     Indication: PSORIASIS
     Route: 061
  8. MYSER [Concomitant]
     Indication: PSORIASIS
     Route: 061
  9. OXAROL [Concomitant]
     Indication: PSORIASIS
     Route: 061
  10. CLARITH [Concomitant]
     Indication: BRONCHITIS
     Dosage: 400 UNIT UNSPECIFIED
     Route: 048
     Dates: start: 20120720, end: 20120724
  11. LOXONIN [Concomitant]
     Indication: BRONCHITIS
     Route: 048
     Dates: start: 20120720, end: 20120724
  12. MUCODYNE [Concomitant]
     Indication: BRONCHITIS
     Route: 048
     Dates: start: 20120720, end: 20120724
  13. HUSCODE [Concomitant]
     Indication: BRONCHITIS
     Route: 048
     Dates: start: 20120720, end: 20120724
  14. BAKUMONDOUTO [Concomitant]
     Indication: BRONCHITIS
     Route: 048
     Dates: start: 20120720, end: 20120724

REACTIONS (1)
  - Nephrolithiasis [Unknown]
